FAERS Safety Report 6584238-3 (Version None)
Quarter: 2010Q1

REPORT INFORMATION
  Report Type: 
  Country: None (occurrence: None)
  Receive Date: 20100216
  Receipt Date: 20100104
  Transmission Date: 20100710
  Serious: No
  Sender: FDA-Public Use
  Company Number: US-ABBOTT-10P-163-0617503-00

PATIENT
  Sex: Male
  Weight: 108.96 kg

DRUGS (6)
  1. SIMCOR [Suspect]
     Indication: BLOOD CHOLESTEROL INCREASED
     Dosage: AT BEDTIME
     Route: 048
     Dates: start: 20091204
  2. PLAVIX [Concomitant]
     Indication: CARDIAC DISORDER
  3. COUMADIN [Concomitant]
     Indication: CARDIAC DISORDER
  4. DILTIAZEM HCL [Concomitant]
     Indication: CARDIAC DISORDER
  5. UNKNOWN ACE INHIBITOR [Concomitant]
     Indication: CARDIAC DISORDER
  6. UNKNOWN BETA BLOCKER [Concomitant]
     Indication: CARDIAC DISORDER

REACTIONS (1)
  - MYALGIA [None]
